FAERS Safety Report 18399383 (Version 3)
Quarter: 2021Q2

REPORT INFORMATION
  Report Type: Spontaneous
  Country: US (occurrence: US)
  Receive Date: 20201019
  Receipt Date: 20210607
  Transmission Date: 20210717
  Serious: No
  Sender: FDA-Public Use
  Company Number: US-PFIZER INC-2020398541

PATIENT
  Age: 68 Year
  Sex: Female

DRUGS (3)
  1. BOSULIF [Suspect]
     Active Substance: BOSUTINIB MONOHYDRATE
     Indication: CHRONIC MYELOID LEUKAEMIA
     Dosage: 400 MG, 1X/DAY (PER DAY)
  2. BOSULIF [Suspect]
     Active Substance: BOSUTINIB MONOHYDRATE
     Dosage: 200 MG, CYCLIC, (FOR 2?3 WEEKS)
  3. BOSULIF [Suspect]
     Active Substance: BOSUTINIB MONOHYDRATE
     Dosage: 100 MG, CYCLIC, (FOR 3 WEEKS)

REACTIONS (10)
  - Illness [Unknown]
  - Fatigue [Unknown]
  - Neoplasm progression [Unknown]
  - Vomiting [Unknown]
  - Dehydration [Unknown]
  - Cardiac disorder [Unknown]
  - Weight increased [Unknown]
  - Throat irritation [Unknown]
  - Diarrhoea [Unknown]
  - Fluid retention [Unknown]
